FAERS Safety Report 8005812-3 (Version None)
Quarter: 2011Q4

REPORT INFORMATION
  Report Type: 
  Country: None (occurrence: None)
  Receive Date: 20111223
  Receipt Date: 20111220
  Transmission Date: 20120403
  Serious: Yes (Death, Other)
  Sender: FDA-Public Use
  Company Number: US-PFIZER INC-2011236550

PATIENT
  Sex: Female
  Weight: 66 kg

DRUGS (10)
  1. TEMAZEPAM [Suspect]
     Dosage: 30 MG, 1 IN THE EVENING
  2. OXYCODONE HCL [Suspect]
     Dosage: UNK
  3. ZOLPIDEM [Concomitant]
     Dosage: 10 MG, BEDTIME
  4. VENLAFAXINE HCL [Suspect]
     Dosage: UNK
  5. CITALOPRAM HYDROCHLORIDE [Concomitant]
     Dosage: 40 MG, DAILY
  6. HYDROCODONE [Concomitant]
     Dosage: 5 / 500; UNK
  7. DIAZEPAM [Suspect]
     Dosage: UNK
  8. DEXTROAMPHETAMINE [Concomitant]
     Dosage: 10 MG, BEDTIME
  9. CONCERTA [Concomitant]
     Dosage: 36 MG, 2 TABLETS DAILY
  10. CLONAZEPAM [Concomitant]
     Dosage: 1 MG, 2X/DAY

REACTIONS (2)
  - MULTIPLE DRUG OVERDOSE ACCIDENTAL [None]
  - DEATH [None]
